FAERS Safety Report 24232012 (Version 2)
Quarter: 2024Q3

REPORT INFORMATION
  Report Type: Spontaneous
  Country: US (occurrence: US)
  Receive Date: 20240821
  Receipt Date: 20240905
  Transmission Date: 20241016
  Serious: Yes (Other)
  Sender: MACLEODS
  Company Number: US-MACLEODS PHARMA-MAC2024048858

PATIENT

DRUGS (5)
  1. LEVOTHYROXINE [Suspect]
     Active Substance: LEVOTHYROXINE\LEVOTHYROXINE SODIUM
     Indication: Autoimmune hypothyroidism
     Route: 065
  2. TIRZEPATIDE [Suspect]
     Active Substance: TIRZEPATIDE
     Indication: Obesity
     Dosage: WEEKLY, 6 MONTHS PRIO
     Route: 065
  3. TIRZEPATIDE [Suspect]
     Active Substance: TIRZEPATIDE
     Dosage: WEEKLY, MAINTAINED 10MG DOSE FOR ANOTHER 2 MONTHS UP TO 10MG
     Route: 065
  4. TIRZEPATIDE [Suspect]
     Active Substance: TIRZEPATIDE
     Dosage: DOSE WAS INCREASED
     Route: 065
  5. INSULIN NOS [Concomitant]
     Active Substance: INSULIN NOS
     Route: 065

REACTIONS (3)
  - Atrial fibrillation [Unknown]
  - Hyperthyroidism [Unknown]
  - Weight decreased [Unknown]
